FAERS Safety Report 5183857-9 (Version None)
Quarter: 2006Q4

REPORT INFORMATION
  Report Type: 
  Country: None (occurrence: None)
  Receive Date: 20061220
  Receipt Date: 20061211
  Transmission Date: 20070319
  Serious: Yes (Other)
  Sender: FDA-Public Use
  Company Number: PHEH2006US15125

PATIENT
  Age: 52 Year
  Sex: Female

DRUGS (2)
  1. ZOMETA [Suspect]
     Indication: BREAST CANCER METASTATIC
     Dosage: UNK QMO
     Route: 042
     Dates: start: 20010101, end: 20060101
  2. CHEMOTHERAPY [Concomitant]

REACTIONS (3)
  - OSTEONECROSIS [None]
  - PAIN [None]
  - THINKING ABNORMAL [None]
